FAERS Safety Report 24536375 (Version 1)
Quarter: 2024Q4

REPORT INFORMATION
  Report Type: Spontaneous
  Country: US (occurrence: US)
  Receive Date: 20241022
  Receipt Date: 20241022
  Transmission Date: 20250114
  Serious: Yes (Hospitalization)
  Sender: MERCK
  Company Number: US-009507513-2410USA005757

PATIENT
  Sex: Female

DRUGS (2)
  1. KEYTRUDA [Suspect]
     Active Substance: PEMBROLIZUMAB
     Indication: Triple negative breast cancer
     Dosage: UNK
     Route: 042
     Dates: start: 2023, end: 202306
  2. CHOLESTYRAMINE [Concomitant]
     Active Substance: CHOLESTYRAMINE

REACTIONS (7)
  - Hospitalisation [Recovered/Resolved]
  - Hypopituitarism [Unknown]
  - Muscle spasms [Unknown]
  - Restlessness [Unknown]
  - Vomiting [Unknown]
  - Parosmia [Unknown]
  - Weight decreased [Unknown]
